FAERS Safety Report 6292670-0 (Version None)
Quarter: 2009Q3

REPORT INFORMATION
  Report Type: 
  Country: None (occurrence: None)
  Receive Date: 20090731
  Receipt Date: 20090727
  Transmission Date: 20100115
  Serious: Yes (Life-Threatening)
  Sender: FDA-Public Use
  Company Number: JP-ASTRAZENECA-2009AP01051

PATIENT
  Age: 74 Year
  Sex: Female
  Weight: 48 kg

DRUGS (14)
  1. IRESSA [Suspect]
     Indication: LUNG NEOPLASM MALIGNANT
     Route: 048
     Dates: start: 20081218, end: 20090106
  2. IRESSA [Suspect]
     Route: 048
     Dates: start: 20090111, end: 20090123
  3. RINDERON [Suspect]
     Indication: BRAIN CANCER METASTATIC
     Route: 042
     Dates: start: 20081216, end: 20090120
  4. RINDERON [Suspect]
     Route: 042
     Dates: start: 20090120
  5. LOXOPROFEN [Concomitant]
     Indication: CANCER PAIN
     Route: 048
     Dates: start: 20081215, end: 20090106
  6. MAGMITT [Concomitant]
     Indication: CONSTIPATION
     Route: 048
     Dates: start: 20081215, end: 20090106
  7. EXCELASE [Concomitant]
     Indication: DYSPEPSIA
     Route: 048
     Dates: start: 20081215, end: 20090106
  8. GASTER [Concomitant]
     Indication: GASTRIC ULCER
     Route: 048
     Dates: start: 20081222, end: 20090122
  9. DEPAKENE [Concomitant]
     Indication: EPILEPSY
     Route: 048
     Dates: start: 20081230, end: 20090122
  10. GLYCEREB [Concomitant]
     Indication: BRAIN CANCER METASTATIC
     Route: 042
     Dates: start: 20081230
  11. OXYCONTIN [Concomitant]
     Indication: CANCER PAIN
     Route: 048
     Dates: start: 20090104, end: 20090113
  12. BFLUID [Concomitant]
     Indication: DEHYDRATION
     Route: 042
     Dates: start: 20090106
  13. ZOSYN [Concomitant]
     Indication: PNEUMONIA
     Route: 042
     Dates: start: 20090108, end: 20090114
  14. SERENACE [Concomitant]
     Indication: DELIRIUM
     Dosage: 12-24 MG/DAY
     Route: 058
     Dates: start: 20090110, end: 20090128

REACTIONS (2)
  - OESOPHAGEAL ULCER [None]
  - PROCTITIS ULCERATIVE [None]
